FAERS Safety Report 6661213-1 (Version None)
Quarter: 2010Q1

REPORT INFORMATION
  Report Type: 
  Country: None (occurrence: None)
  Receive Date: 20100331
  Receipt Date: 20100329
  Transmission Date: 20100710
  Serious: Yes (Other)
  Sender: FDA-Public Use
  Company Number: JP-ROCHE-693769

PATIENT
  Age: 5 Year
  Sex: Male

DRUGS (6)
  1. NAIXAN [Suspect]
     Indication: LANGERHANS' CELL HISTIOCYTOSIS
     Route: 065
     Dates: start: 20090101
  2. BACILLUS CALMETTE-GUERIN [Suspect]
     Indication: LANGERHANS' CELL HISTIOCYTOSIS
     Route: 065
  3. METHOTREXATE [Suspect]
     Indication: LANGERHANS' CELL HISTIOCYTOSIS
     Route: 065
  4. DEXAMETASONE [Suspect]
     Indication: LANGERHANS' CELL HISTIOCYTOSIS
     Route: 065
     Dates: end: 20090101
  5. CYCLOSPORINE [Suspect]
     Indication: LANGERHANS' CELL HISTIOCYTOSIS
     Route: 065
     Dates: end: 20090101
  6. TACROLIMUS HYDRATE [Suspect]
     Indication: LANGERHANS' CELL HISTIOCYTOSIS
     Route: 065
     Dates: end: 20090101

REACTIONS (1)
  - BONE TUBERCULOSIS [None]
